FAERS Safety Report 10090040 (Version 1)
Quarter: 2014Q2

REPORT INFORMATION
  Report Type: Spontaneous
  Country: IT (occurrence: IT)
  Receive Date: 20140421
  Receipt Date: 20140421
  Transmission Date: 20141212
  Serious: Yes (Hospitalization)
  Sender: FDA-Public Use
  Company Number: IT-ACTAVIS-2014-07552

PATIENT
  Age: 84 Year
  Sex: Male

DRUGS (12)
  1. TRAMADOL (UNKNOWN) [Suspect]
     Indication: BACK PAIN
     Dosage: 25 MG, DAILY
     Route: 065
  2. INTANZA [Interacting]
     Indication: INFLUENZA IMMUNISATION
     Dosage: UNK
     Route: 065
  3. ALLOPURINOL [Concomitant]
     Indication: PRODUCT USED FOR UNKNOWN INDICATION
     Dosage: 150 MG, DAILY
     Route: 065
  4. DIGOXIN [Concomitant]
     Indication: PRODUCT USED FOR UNKNOWN INDICATION
     Dosage: 0.625 MG, DAILY
     Route: 065
  5. FUROSEMIDE [Concomitant]
     Indication: PRODUCT USED FOR UNKNOWN INDICATION
     Dosage: 50 MG, DAILY
     Route: 065
  6. PRAMIPEXOLE [Concomitant]
     Indication: PRODUCT USED FOR UNKNOWN INDICATION
     Dosage: 0.18 MG, DAILY
     Route: 065
  7. OLMESARTAN [Concomitant]
     Indication: PRODUCT USED FOR UNKNOWN INDICATION
     Dosage: 20 MG, DAILY
     Route: 065
  8. PANTOPRAZOLE [Concomitant]
     Indication: PRODUCT USED FOR UNKNOWN INDICATION
     Dosage: 20 MG, DAILY
     Route: 065
  9. REPAGLINIDE [Concomitant]
     Indication: PRODUCT USED FOR UNKNOWN INDICATION
     Dosage: 1.5 MG, DAILY
     Route: 065
  10. DILTIAZEM [Concomitant]
     Indication: PRODUCT USED FOR UNKNOWN INDICATION
     Dosage: 240 MG, DAILY
     Route: 065
  11. SALMETEROL [Concomitant]
     Indication: PRODUCT USED FOR UNKNOWN INDICATION
     Dosage: 50 ?G, BID
     Route: 065
  12. FLUTICASONE [Concomitant]
     Indication: PRODUCT USED FOR UNKNOWN INDICATION
     Dosage: 500 MG, BID
     Route: 065

REACTIONS (4)
  - Hallucination [Recovered/Resolved]
  - Psychomotor hyperactivity [Unknown]
  - Hypotension [Unknown]
  - Drug interaction [Unknown]
